FAERS Safety Report 4703781-2 (Version None)
Quarter: 2005Q2

REPORT INFORMATION
  Report Type: 
  Country: None (occurrence: None)
  Receive Date: 20050629
  Receipt Date: 20050629
  Transmission Date: 20051028
  Serious: Yes (Hospitalization)
  Sender: FDA-Public Use
  Company Number: None

PATIENT
  Age: 68 Year
  Sex: Male
  Weight: 76 kg

DRUGS (2)
  1. ENOXAPARIN SODIUM [Suspect]
     Indication: ANTICOAGULANT THERAPY
     Dosage: SEE IMAGE
     Route: 058
     Dates: start: 20050407, end: 20050414
  2. ENOXAPARIN SODIUM [Suspect]
     Indication: PROPHYLAXIS
     Dosage: SEE IMAGE
     Route: 058
     Dates: start: 20050407, end: 20050414

REACTIONS (2)
  - ABDOMINAL HAEMATOMA [None]
  - ABDOMINAL PAIN [None]
